FAERS Safety Report 24141638 (Version 2)
Quarter: 2024Q3

REPORT INFORMATION
  Report Type: Spontaneous
  Country: JP (occurrence: JP)
  Receive Date: 20240726
  Receipt Date: 20240830
  Transmission Date: 20241017
  Serious: Yes (Other)
  Sender: ROCHE
  Company Number: JP-CHUGAI-2024024634

PATIENT
  Age: 59 Year
  Sex: Female

DRUGS (3)
  1. AVASTIN [Suspect]
     Active Substance: BEVACIZUMAB
     Indication: Cervix carcinoma
     Dosage: UNK
     Route: 042
  2. PACLITAXEL [Concomitant]
     Active Substance: PACLITAXEL
     Indication: Cervix carcinoma
     Dosage: UNK
     Route: 042
     Dates: start: 202202
  3. CISPLATIN [Concomitant]
     Active Substance: CISPLATIN
     Indication: Cervix carcinoma
     Dosage: UNK
     Route: 042
     Dates: start: 202202

REACTIONS (8)
  - Gastrointestinal necrosis [Unknown]
  - Gastrointestinal oedema [Unknown]
  - Abdominal distension [Unknown]
  - Ascites [Unknown]
  - Urinary bladder rupture [Recovered/Resolved with Sequelae]
  - Female genital tract fistula [Recovered/Resolved with Sequelae]
  - Urogenital fistula [Recovered/Resolved with Sequelae]
  - Hydronephrosis [Recovered/Resolved with Sequelae]

NARRATIVE: CASE EVENT DATE: 20220601
